FAERS Safety Report 13418415 (Version 1)
Quarter: 2017Q2

REPORT INFORMATION
  Report Type: Report from Study
  Country: None (occurrence: BR)
  Receive Date: 20170407
  Receipt Date: 20170407
  Transmission Date: 20170830
  Serious: Yes (Other)
  Sender: FDA-Public Use
  Company Number: BR-ABBVIE-17K-020-1933112-00

PATIENT
  Age: 68 Year
  Sex: Female
  Weight: 63 kg

DRUGS (1)
  1. HUMIRA [Suspect]
     Active Substance: ADALIMUMAB
     Indication: RHEUMATOID ARTHRITIS
     Route: 058
     Dates: start: 20120609

REACTIONS (3)
  - Gait disturbance [Recovered/Resolved]
  - Musculoskeletal disorder [Recovered/Resolved]
  - Cervical cord compression [Unknown]

NARRATIVE: CASE EVENT DATE: 201610
